FAERS Safety Report 7788007-8 (Version None)
Quarter: 2011Q3

REPORT INFORMATION
  Report Type: 
  Country: None (occurrence: None)
  Receive Date: 20110927
  Receipt Date: 20110914
  Transmission Date: 20111222
  Serious: Yes (Other)
  Sender: FDA-Public Use
  Company Number: JPI-P-017066

PATIENT
  Age: 59 Year
  Sex: Male

DRUGS (2)
  1. XYREM [Suspect]
     Indication: PRODUCT USED FOR UNKNOWN INDICATION
     Dosage: 4.5; 9 GM (2.25 GM, 2 IN 1 D) ORAL
     Route: 048
     Dates: start: 20031230
  2. XYREM [Suspect]
     Indication: PRODUCT USED FOR UNKNOWN INDICATION
     Dosage: 4.5; 9 GM (2.25 GM, 2 IN 1 D) ORAL
     Route: 048
     Dates: start: 20110408

REACTIONS (1)
  - CEREBROVASCULAR ACCIDENT [None]
